FAERS Safety Report 23484689 (Version 1)
Quarter: 2024Q1

REPORT INFORMATION
  Report Type: Spontaneous
  Country: US (occurrence: US)
  Receive Date: 20240206
  Receipt Date: 20240206
  Transmission Date: 20240409
  Serious: No
  Sender: FDA-Public Use
  Company Number: US-OPELLA-2024OHG003099

PATIENT
  Sex: Female

DRUGS (1)
  1. XYZAL ALLERGY 24HR [Suspect]
     Active Substance: LEVOCETIRIZINE DIHYDROCHLORIDE
     Dosage: SHE TOOK HALF OF THE DOSED OF A 5MG XYZAL

REACTIONS (4)
  - Incorrect dose administered [Unknown]
  - Maternal exposure during breast feeding [Unknown]
  - Wrong technique in product usage process [Unknown]
  - No adverse event [Unknown]
